FAERS Safety Report 24116638 (Version 2)
Quarter: 2024Q3

REPORT INFORMATION
  Report Type: Spontaneous
  Country: US (occurrence: US)
  Receive Date: 20240722
  Receipt Date: 20240722
  Transmission Date: 20241017
  Serious: No
  Sender: ASTELLAS
  Company Number: US-ASTELLAS-2023US032073

PATIENT
  Age: 80 Year
  Sex: Female

DRUGS (2)
  1. MYRBETRIQ [Suspect]
     Active Substance: MIRABEGRON
     Indication: Urinary incontinence
     Route: 065
  2. MYRBETRIQ [Suspect]
     Active Substance: MIRABEGRON
     Indication: Urinary incontinence
     Dosage: UNK UNK, ONCE DAILY
     Route: 065
     Dates: end: 202307

REACTIONS (6)
  - Mental disorder [Unknown]
  - Negative thoughts [Unknown]
  - Balance disorder [Unknown]
  - COVID-19 [Unknown]
  - Dry mouth [Unknown]
  - Illness [Unknown]
